FAERS Safety Report 18240088 (Version 4)
Quarter: 2020Q3

REPORT INFORMATION
  Report Type: Report from Study
  Country: None (occurrence: AU)
  Receive Date: 20200908
  Receipt Date: 20200930
  Transmission Date: 20201103
  Serious: Yes (Hospitalization, Other)
  Sender: FDA-Public Use
  Company Number: AU-ABBVIE-20K-008-3552492-00

PATIENT
  Age: 57 Year
  Sex: Male

DRUGS (2)
  1. DUODOPA [Suspect]
     Active Substance: CARBIDOPA\LEVODOPA
  2. DUODOPA [Suspect]
     Active Substance: CARBIDOPA\LEVODOPA
     Indication: PARKINSON^S DISEASE
     Dosage: 16 HOURS
     Route: 050
     Dates: start: 20160801, end: 2020

REACTIONS (13)
  - Hypophagia [Recovering/Resolving]
  - Stoma site discharge [Not Recovered/Not Resolved]
  - Malaise [Unknown]
  - Device dislocation [Unknown]
  - Pyrexia [Unknown]
  - Behaviour disorder [Unknown]
  - Device issue [Not Recovered/Not Resolved]
  - Stoma site pain [Not Recovered/Not Resolved]
  - Embedded device [Not Recovered/Not Resolved]
  - Weight decreased [Unknown]
  - Abscess [Unknown]
  - Stoma site erythema [Not Recovered/Not Resolved]
  - Peritonitis [Unknown]

NARRATIVE: CASE EVENT DATE: 2020
